FAERS Safety Report 22275973 (Version 5)
Quarter: 2023Q4

REPORT INFORMATION
  Report Type: Other
  Country: CA (occurrence: None)
  Receive Date: 20230502
  Receipt Date: 20231214
  Transmission Date: 20240110
  Serious: Yes (Life-Threatening, Hospitalization, Other)
  Sender: FDA-Public Use
  Company Number: CA-ROCHE-3339380

PATIENT
  Age: 43 Year
  Sex: Female

DRUGS (2)
  1. OCREVUS [Suspect]
     Active Substance: OCRELIZUMAB
     Indication: Relapsing-remitting multiple sclerosis
     Dosage: 300 MG AT DAY 0 AND 14, THEN 600 MG EVERY 6 MONTH
     Route: 042
     Dates: start: 20210128
  2. EPIPEN [Concomitant]
     Active Substance: EPINEPHRINE

REACTIONS (14)
  - Anaphylactic reaction [Unknown]
  - Cardiac disorder [Unknown]
  - Blood pressure fluctuation [Recovered/Resolved]
  - Angina pectoris [Unknown]
  - Electrocardiogram abnormal [Unknown]
  - Syncope [Recovered/Resolved]
  - Herpes virus infection [Unknown]
  - Post-traumatic stress disorder [Not Recovered/Not Resolved]
  - Weight increased [Not Recovered/Not Resolved]
  - Fluid retention [Not Recovered/Not Resolved]
  - Dyspnoea [Not Recovered/Not Resolved]
  - Palpitations [Unknown]
  - Skin laceration [Recovering/Resolving]
  - Herpes virus infection [Unknown]

NARRATIVE: CASE EVENT DATE: 20230713
